FAERS Safety Report 4787627-2 (Version None)
Quarter: 2005Q4

REPORT INFORMATION
  Report Type: 
  Country: None (occurrence: None)
  Receive Date: 20051003
  Receipt Date: 20050921
  Transmission Date: 20060501
  Serious: Yes (Hospitalization)
  Sender: FDA-Public Use
  Company Number: 2005133050

PATIENT
  Age: 83 Year
  Sex: Male

DRUGS (2)
  1. QUINAPRIL HYDROCHLORIDE AND HYDROCHLOROTHIAZDE [Suspect]
     Indication: ILL-DEFINED DISORDER
     Dosage: ORAL
     Route: 048
     Dates: end: 20040515
  2. SPIRONOLACTONE AND HYDROCHLOROTHIAZIDE [Suspect]
     Indication: ILL-DEFINED DISORDER
     Dosage: ORAL
     Route: 048
     Dates: end: 20040515

REACTIONS (3)
  - CONDITION AGGRAVATED [None]
  - HYPOKALAEMIA [None]
  - MYASTHENIC SYNDROME [None]
